FAERS Safety Report 8907869 (Version 2)
Quarter: 2012Q4

REPORT INFORMATION
  Report Type: 
  Country: US (occurrence: US)
  Receive Date: 20121114
  Receipt Date: 20121122
  Transmission Date: 20130627
  Serious: Yes (Other)
  Sender: FDA-Public Use
  Company Number: CHPA2012US023324

PATIENT
  Age: 79 Year
  Sex: Female

DRUGS (1)
  1. VOLTAREN GEL [Suspect]
     Indication: ARTHRALGIA
     Dosage: Little bit at night
     Route: 061
     Dates: start: 2010

REACTIONS (13)
  - Musculoskeletal pain [Recovered/Resolved]
  - Joint injury [Recovered/Resolved]
  - Excoriation [Recovered/Resolved]
  - Balance disorder [Recovered/Resolved]
  - Pain in extremity [Unknown]
  - Fall [Not Recovered/Not Resolved]
  - Insomnia [Not Recovered/Not Resolved]
  - Off label use [Unknown]
  - Therapeutic response unexpected [Unknown]
  - Asthenia [Recovered/Resolved]
  - Chest pain [Unknown]
  - Wrong technique in drug usage process [Unknown]
  - Drug administered at inappropriate site [Unknown]
